FAERS Safety Report 4522269-5 (Version None)
Quarter: 2004Q4

REPORT INFORMATION
  Report Type: 
  Country: None (occurrence: None)
  Receive Date: 20041207
  Receipt Date: 20041124
  Transmission Date: 20050328
  Serious: Yes (Other)
  Sender: FDA-Public Use
  Company Number: USA041184625

PATIENT
  Sex: Female

DRUGS (2)
  1. GEMZAR [Suspect]
  2. AVASTIN [Concomitant]

REACTIONS (2)
  - CONDITION AGGRAVATED [None]
  - EJECTION FRACTION DECREASED [None]
